FAERS Safety Report 14179799 (Version 1)
Quarter: 2017Q4

REPORT INFORMATION
  Report Type: Spontaneous
  Country: US (occurrence: US)
  Receive Date: 20171110
  Receipt Date: 20171110
  Transmission Date: 20180321
  Serious: No
  Sender: FDA-Public Use
  Company Number: US-TEIKOKU PHARMA USA-TPU2017-00691

PATIENT
  Age: 54 Year
  Sex: Male
  Weight: 148.91 kg

DRUGS (1)
  1. LIDOCAINE PATCH [Suspect]
     Active Substance: LIDOCAINE
     Indication: ARTHRALGIA
     Dosage: APPLY ONE PATCH TO WRIST EVERY 12 HOURS
     Route: 061
     Dates: start: 20171104

REACTIONS (2)
  - Inappropriate schedule of drug administration [Unknown]
  - Application site rash [Unknown]

NARRATIVE: CASE EVENT DATE: 20171104
